FAERS Safety Report 17971461 (Version 4)
Quarter: 2021Q1

REPORT INFORMATION
  Report Type: Report from Study
  Country: US (occurrence: US)
  Receive Date: 20200701
  Receipt Date: 20210205
  Transmission Date: 20210419
  Serious: Yes (Hospitalization, Other)
  Sender: FDA-Public Use
  Company Number: US-BAUSCH-BL-2020-017109

PATIENT
  Age: 67 Year
  Sex: Female
  Weight: 76.27 kg

DRUGS (16)
  1. LOVASTATIN. [Concomitant]
     Active Substance: LOVASTATIN
     Indication: PRODUCT USED FOR UNKNOWN INDICATION
     Route: 048
  2. LASIX [Concomitant]
     Active Substance: FUROSEMIDE
     Indication: PRODUCT USED FOR UNKNOWN INDICATION
     Dosage: 60 (UNITS UNSPECIFIED)
     Route: 048
  3. ZAROXOLYN [Concomitant]
     Active Substance: METOLAZONE
     Indication: PRODUCT USED FOR UNKNOWN INDICATION
  4. SPIRONOLACTONE. [Concomitant]
     Active Substance: SPIRONOLACTONE
     Indication: PRODUCT USED FOR UNKNOWN INDICATION
  5. XIFAXAN [Suspect]
     Active Substance: RIFAXIMIN
     Dosage: RESTARTED, DISCONTINUED ON AN UNKNOWN DATE
     Route: 048
     Dates: start: 2020
  6. METFORMIN [Concomitant]
     Active Substance: METFORMIN HYDROCHLORIDE
     Indication: PRODUCT USED FOR UNKNOWN INDICATION
     Route: 048
  7. PROTONIX [Concomitant]
     Active Substance: PANTOPRAZOLE SODIUM
     Indication: DIABETES MELLITUS
     Route: 048
  8. ZOFRAN ODT [Concomitant]
     Active Substance: ONDANSETRON HYDROCHLORIDE
     Indication: PRODUCT USED FOR UNKNOWN INDICATION
     Dosage: AS NEEDED
     Route: 048
  9. LANTUS [Concomitant]
     Active Substance: INSULIN GLARGINE
     Indication: DIABETES MELLITUS
     Route: 058
  10. CELEXA [Concomitant]
     Active Substance: CITALOPRAM HYDROBROMIDE
     Indication: PRODUCT USED FOR UNKNOWN INDICATION
     Route: 048
  11. METOLAZONE. [Concomitant]
     Active Substance: METOLAZONE
     Indication: PRODUCT USED FOR UNKNOWN INDICATION
     Dosage: 2.5 (UNITS UNSPECIFIED), AS DIRECTED
     Route: 048
  12. ALDACTONE [Concomitant]
     Active Substance: SPIRONOLACTONE
     Indication: PRODUCT USED FOR UNKNOWN INDICATION
     Route: 048
  13. ENULOSE [Concomitant]
     Active Substance: LACTULOSE
     Indication: PRODUCT USED FOR UNKNOWN INDICATION
     Dosage: 10 G/15 ML
     Route: 048
  14. XIFAXAN [Suspect]
     Active Substance: RIFAXIMIN
     Indication: HEPATIC ENCEPHALOPATHY
     Route: 048
     Dates: start: 20191114, end: 2020
  15. XIFAXAN [Suspect]
     Active Substance: RIFAXIMIN
     Indication: HEPATIC CIRRHOSIS
     Dosage: STARTED APPROXIMATELY 1 MONTH AGO FROM THE DATE OF SECOND FOLLOW UP REPORT
     Route: 048
     Dates: start: 202005, end: 2020
  16. LACTULOSE. [Concomitant]
     Active Substance: LACTULOSE
     Indication: PRODUCT USED FOR UNKNOWN INDICATION

REACTIONS (8)
  - Pruritus [Recovered/Resolved]
  - Condition aggravated [Recovering/Resolving]
  - Ascites [Recovering/Resolving]
  - Abdominal distension [Recovering/Resolving]
  - Therapy cessation [Unknown]
  - Insurance issue [Unknown]
  - Therapy interrupted [Unknown]
  - Hepatic encephalopathy [Recovering/Resolving]

NARRATIVE: CASE EVENT DATE: 2020
